FAERS Safety Report 4383106-5 (Version None)
Quarter: 2004Q2

REPORT INFORMATION
  Report Type: 
  Country: None (occurrence: None)
  Receive Date: 20040618
  Receipt Date: 20040531
  Transmission Date: 20050107
  Serious: Yes (Hospitalization)
  Sender: FDA-Public Use
  Company Number: JP_040603257

PATIENT
  Age: 70 Year
  Sex: Female
  Weight: 53 kg

DRUGS (5)
  1. GEMZAR [Suspect]
     Indication: PANCREATIC CARCINOMA
     Dosage: 1000 MG/M2 OTHER
     Dates: start: 20030808, end: 20040428
  2. LOXONIN(LOXOPROFEN SODIUM) [Concomitant]
  3. AZUNOL #1(AZULENE) [Concomitant]
  4. ZANTAC [Concomitant]
  5. LIPITOR [Concomitant]

REACTIONS (7)
  - ANGINA PECTORIS [None]
  - ASTHENIA [None]
  - BONE MARROW DEPRESSION [None]
  - CORONARY ARTERY STENOSIS [None]
  - ELECTROCARDIOGRAM CHANGE [None]
  - NAUSEA [None]
  - VOMITING [None]
